FAERS Safety Report 8621570-3 (Version None)
Quarter: 2012Q3

REPORT INFORMATION
  Report Type: 
  Country: None (occurrence: None)
  Receive Date: 20120825
  Receipt Date: 20120820
  Transmission Date: 20120928
  Serious: Yes (Other)
  Sender: FDA-Public Use
  Company Number: GB-ACCORD-014492

PATIENT
  Age: 47 Year
  Sex: Male
  Weight: 105 kg

DRUGS (3)
  1. SIMVASTATIN [Suspect]
     Route: 048
     Dates: start: 20050323
  2. AMLODIPINE [Concomitant]
     Indication: HYPERTENSION
     Route: 048
     Dates: start: 20091215
  3. RAMIPRIL [Concomitant]
     Indication: HYPERTENSION
     Route: 048
     Dates: start: 20070131

REACTIONS (1)
  - CATARACT [None]
